FAERS Safety Report 20692763 (Version 4)
Quarter: 2022Q2

REPORT INFORMATION
  Report Type: Report from Study
  Country: CN (occurrence: CN)
  Receive Date: 20220409
  Receipt Date: 20220621
  Transmission Date: 20220720
  Serious: Yes (Hospitalization)
  Sender: FDA-Public Use
  Company Number: CN-GILEAD-2022-0573115

PATIENT
  Sex: Male
  Weight: 78 kg

DRUGS (9)
  1. SACITUZUMAB GOVITECAN [Suspect]
     Active Substance: SACITUZUMAB GOVITECAN
     Indication: Transitional cell cancer of the renal pelvis and ureter
     Dosage: 780 MG C1D1
     Route: 042
     Dates: start: 20220301, end: 20220301
  2. SACITUZUMAB GOVITECAN [Suspect]
     Active Substance: SACITUZUMAB GOVITECAN
     Dosage: 770 MG C1D8
     Route: 042
     Dates: start: 20220315, end: 20220315
  3. AMLODIPINE BESYLATE [Concomitant]
     Active Substance: AMLODIPINE BESYLATE
     Indication: Hypertension
     Dosage: UNK
  4. HERICIUM [HERICIUM ERINACEUS] [Concomitant]
     Indication: Chronic gastritis
     Dosage: UNK
     Dates: start: 20220224
  5. CEFOPERAZONE SODIUM\SULBACTAM SODIUM [Concomitant]
     Active Substance: CEFOPERAZONE SODIUM\SULBACTAM SODIUM
     Indication: Anti-infective therapy
     Dosage: UNK
     Dates: start: 20220308, end: 20220314
  6. INDOMETHACIN [Concomitant]
     Active Substance: INDOMETHACIN
     Indication: Febrile neutropenia
     Dosage: UNK
     Dates: start: 20220308, end: 20220308
  7. GRANULOCYTE COLONY-STIMULATING FACTOR NOS [Concomitant]
     Active Substance: GRANULOCYTE COLONY-STIMULATING FACTOR NOS
     Indication: Febrile neutropenia
     Dosage: UNK
     Dates: start: 20220308, end: 20220310
  8. UREA [Concomitant]
     Active Substance: UREA
     Dosage: UNK
     Dates: start: 20220308, end: 20220311
  9. METHYLPREDNISOLONE [Concomitant]
     Active Substance: METHYLPREDNISOLONE
     Dosage: UNK
     Dates: start: 20220308, end: 20220308

REACTIONS (3)
  - Pyrexia [Not Recovered/Not Resolved]
  - Neutrophil count decreased [Recovered/Resolved]
  - Febrile neutropenia [Recovered/Resolved]

NARRATIVE: CASE EVENT DATE: 20220308
